FAERS Safety Report 8264550-2 (Version None)
Quarter: 2012Q2

REPORT INFORMATION
  Report Type: 
  Country: None (occurrence: None)
  Receive Date: 20120406
  Receipt Date: 20120329
  Transmission Date: 20120825
  Serious: Yes (Hospitalization, Other)
  Sender: FDA-Public Use
  Company Number: DE-UCBSA-053183

PATIENT
  Age: 75 Year
  Sex: Male
  Weight: 90 kg

DRUGS (2)
  1. VIMPAT [Suspect]
     Dosage: (150) 2X1 TABLETS- TOTAL AMOUNT:300MG
     Route: 048
  2. TOPAMAX [Suspect]
     Dosage: (DOSE STRENGTH:50) 2X1 TABLET ; TOTAL AMOUNT: 100MG ;(DOSE STRENGTH:100) 2X1 TABLETS;200MG
     Route: 048

REACTIONS (1)
  - INCORRECT DOSE ADMINISTERED [None]
